FAERS Safety Report 8175221-5 (Version None)
Quarter: 2012Q1

REPORT INFORMATION
  Report Type: 
  Country: None (occurrence: None)
  Receive Date: 20120229
  Receipt Date: 20111122
  Transmission Date: 20120608
  Serious: No
  Sender: FDA-Public Use
  Company Number: US-MYLANLABS-2011S1024625

PATIENT
  Age: 77 Year
  Sex: Male
  Weight: 81.65 kg

DRUGS (27)
  1. DIGOXIN [Suspect]
  2. TEKTURNA [Concomitant]
  3. TOPROL-XL [Concomitant]
  4. TUSSIONEX /00004701/ [Concomitant]
  5. METFORMIN HCL [Concomitant]
  6. AMLODIPINE [Concomitant]
  7. NORVASC [Concomitant]
  8. TORSEMIDE [Concomitant]
  9. ACTOS [Concomitant]
  10. HYDROCHLOROTHIAZIDE [Concomitant]
  11. CLONIDINE [Concomitant]
  12. WELCHOL [Concomitant]
  13. FEXOFENADINE [Concomitant]
  14. ATACAND [Concomitant]
  15. TRICOR [Concomitant]
  16. BENZONATATE [Concomitant]
  17. LISINOPRIL [Concomitant]
  18. NITROGLYCERIN [Concomitant]
  19. LEVAQUIN [Concomitant]
  20. ZYMAR [Concomitant]
  21. AVAPRO [Concomitant]
  22. DIGOXIN [Suspect]
     Dates: start: 20070205, end: 20080509
  23. ADVAIR DISKUS 100/50 [Concomitant]
  24. SPIRONOLACTONE [Concomitant]
  25. WARFARIN SODIUM [Concomitant]
  26. CRESTOR [Concomitant]
  27. ASTELIN [Concomitant]

REACTIONS (6)
  - NAUSEA [None]
  - VOMITING [None]
  - DIZZINESS [None]
  - POLLAKIURIA [None]
  - VISUAL IMPAIRMENT [None]
  - AMNESIA [None]
